FAERS Safety Report 13814974 (Version 5)
Quarter: 2018Q1

REPORT INFORMATION
  Report Type: Spontaneous
  Country: US (occurrence: US)
  Receive Date: 20170731
  Receipt Date: 20180220
  Transmission Date: 20180508
  Serious: Yes (Hospitalization)
  Sender: FDA-Public Use
  Company Number: US-VERTEX PHARMACEUTICALS-2017-003825

PATIENT
  Age: 15 Year
  Sex: Female
  Weight: 59 kg

DRUGS (14)
  1. OMEPRAZOL [Concomitant]
     Active Substance: OMEPRAZOLE
  2. ZANTAC [Concomitant]
     Active Substance: RANITIDINE HYDROCHLORIDE
  3. ORKAMBI [Suspect]
     Active Substance: IVACAFTOR\LUMACAFTOR
     Indication: CYSTIC FIBROSIS
     Dosage: 2 TABS (200-125 MG EACH), BID
     Route: 048
     Dates: start: 20150724, end: 20170807
  4. TOBI [Concomitant]
     Active Substance: TOBRAMYCIN
     Dosage: TOBI AND CAYSTON CONTINUOUS ALTERNATING THERAPY WHEN DISCHARGED
  5. VITAMIN D [Concomitant]
     Active Substance: CHOLECALCIFEROL
     Dosage: 400 UT, BID
  6. ALBUTEROL. [Concomitant]
     Active Substance: ALBUTEROL
     Dosage: 4 TIMES PER DAY
  7. MIRALAX [Concomitant]
     Active Substance: POLYETHYLENE GLYCOL 3350
  8. TOBI [Concomitant]
     Active Substance: TOBRAMYCIN
     Dosage: UNK
  9. ADVAIR HFA [Concomitant]
     Active Substance: FLUTICASONE PROPIONATE\SALMETEROL XINAFOATE
     Indication: ASTHMA
     Dosage: 2 PUFFS, BID
  10. CAYSTON [Concomitant]
     Active Substance: AZTREONAM
     Dosage: CONTINUOUS ALTERNATING THERAPY WHEN DISCHARGED
  11. PULMOZYME [Concomitant]
     Active Substance: DORNASE ALFA
     Dosage: UNK, QD
  12. PREDNISONE. [Concomitant]
     Active Substance: PREDNISONE
     Dosage: UNK
  13. AZITHROMYCIN ANHYDROUS. [Concomitant]
     Active Substance: AZITHROMYCIN ANHYDROUS
     Dosage: 500 MG, M, W, F
  14. HYPERTONIC SALINE SOLUTION [Concomitant]
     Active Substance: SODIUM CHLORIDE
     Dosage: UNK, BID

REACTIONS (6)
  - Cystic fibrosis [Unknown]
  - Staphylococcal infection [Unknown]
  - Dyspnoea [Unknown]
  - Chest pain [Unknown]
  - Anxiety [Unknown]
  - Infective exacerbation of bronchiectasis [Recovering/Resolving]

NARRATIVE: CASE EVENT DATE: 20170720
